FAERS Safety Report 7141671-9 (Version None)
Quarter: 2010Q4

REPORT INFORMATION
  Report Type: 
  Country: None (occurrence: None)
  Receive Date: 20101207
  Receipt Date: 20101125
  Transmission Date: 20110411
  Serious: Yes (Other)
  Sender: FDA-Public Use
  Company Number: PHHY2010VE80596

PATIENT
  Sex: Female

DRUGS (8)
  1. ACLASTA [Suspect]
     Indication: OSTEOPOROSIS
     Dosage: 5 MG, UNK
     Dates: start: 20100610
  2. COZAAR [Concomitant]
     Dosage: 50 MG, UNK
  3. CORZEM [Concomitant]
     Dosage: 120 MG, UNK
  4. TROPOCER [Concomitant]
     Dosage: UNK
  5. CILOSTAZOL [Concomitant]
  6. DAFLOM [Concomitant]
  7. SULODEXIDE [Concomitant]
  8. ROSTAL [Concomitant]
     Indication: ANXIETY

REACTIONS (4)
  - HYPERTENSION [None]
  - MEDICAL DEVICE REMOVAL [None]
  - OEDEMA PERIPHERAL [None]
  - SURGERY [None]
